FAERS Safety Report 7672082-5 (Version None)
Quarter: 2011Q3

REPORT INFORMATION
  Report Type: 
  Country: None (occurrence: None)
  Receive Date: 20110809
  Receipt Date: 20110726
  Transmission Date: 20111222
  Serious: Yes (Other)
  Sender: FDA-Public Use
  Company Number: PHHY2011US67733

PATIENT
  Sex: Female

DRUGS (3)
  1. BLOOD PRESSURE MEDICATION (UNSPECIFIED) [Suspect]
  2. DIOVAN [Suspect]
     Dates: start: 20070101
  3. DIOVAN [Suspect]

REACTIONS (6)
  - APHASIA [None]
  - TRANSIENT ISCHAEMIC ATTACK [None]
  - COUGH [None]
  - HYPERTENSION [None]
  - HEMIPLEGIA [None]
  - MEMORY IMPAIRMENT [None]
